FAERS Safety Report 6770592-6 (Version None)
Quarter: 2010Q2

REPORT INFORMATION
  Report Type: 
  Country: None (occurrence: None)
  Receive Date: 20100615
  Receipt Date: 20100608
  Transmission Date: 20101027
  Serious: Yes (Other)
  Sender: FDA-Public Use
  Company Number: US-SANOFI-AVENTIS-2010SA033494

PATIENT
  Age: 64 Year
  Sex: Female

DRUGS (3)
  1. APIDRA [Suspect]
     Dosage: SLIDING SCALE
     Route: 058
  2. OPTICLICK [Suspect]
  3. INSULIN DETEMIR [Concomitant]

REACTIONS (3)
  - CATARACT [None]
  - GLAUCOMA [None]
  - VISUAL ACUITY REDUCED [None]
